FAERS Safety Report 23990845 (Version 1)
Quarter: 2024Q2

REPORT INFORMATION
  Report Type: Spontaneous
  Country: US (occurrence: US)
  Receive Date: 20240619
  Receipt Date: 20240619
  Transmission Date: 20240716
  Serious: No
  Sender: FDA-Public Use
  Company Number: US-ABBVIE-5800027

PATIENT
  Sex: Male

DRUGS (4)
  1. LUPRON [Suspect]
     Active Substance: LEUPROLIDE ACETATE
     Indication: Product used for unknown indication
     Route: 065
  2. ORGOVYX [Suspect]
     Active Substance: RELUGOLIX
     Indication: Prostate cancer
     Dosage: FORM STRENGTH: 120 MILLIGRAM
     Route: 048
  3. ORGOVYX [Suspect]
     Active Substance: RELUGOLIX
     Indication: Prostate cancer
     Dosage: FORM STRENGTH: 120 MILLIGRAM
     Route: 048
     Dates: start: 20240323
  4. ORGOVYX [Suspect]
     Active Substance: RELUGOLIX
     Indication: Prostate cancer
     Dosage: FORM STRENGTH: 120 MILLIGRAM?360 MILLIGRAM, ONE TIME DOSE
     Route: 048
     Dates: start: 20240322, end: 20240322

REACTIONS (3)
  - Feeling hot [Unknown]
  - Hot flush [Not Recovered/Not Resolved]
  - Hyperhidrosis [Unknown]
